FAERS Safety Report 9527032 (Version 2)
Quarter: 2013Q4

REPORT INFORMATION
  Report Type: Spontaneous
  Country: US (occurrence: US)
  Receive Date: 20130916
  Receipt Date: 20131021
  Transmission Date: 20140711
  Serious: Yes (Hospitalization)
  Sender: FDA-Public Use
  Company Number: US-PFIZER INC-2013264065

PATIENT
  Sex: Male

DRUGS (4)
  1. LIPITOR [Suspect]
     Indication: CARDIAC DISORDER
     Dosage: 40 MG, DAILY
  2. LIPITOR [Suspect]
     Dosage: 80 MG, UNK
  3. CLOPIDOGREL [Concomitant]
     Indication: CARDIAC DISORDER
     Dosage: 75 MG, DAILY
  4. CARVEDILOL [Concomitant]
     Indication: CARDIAC DISORDER
     Dosage: 3.125 MG, 2X/DAY

REACTIONS (1)
  - Myocardial infarction [Unknown]
